FAERS Safety Report 11086983 (Version 1)
Quarter: 2015Q2

REPORT INFORMATION
  Report Type: Spontaneous
  Country: US (occurrence: US)
  Receive Date: 20150504
  Receipt Date: 20150504
  Transmission Date: 20150821
  Serious: No
  Sender: FDA-Public Use
  Company Number: US-BAYER-2015-160579

PATIENT
  Age: 78 Year
  Sex: Female
  Weight: 84.81 kg

DRUGS (3)
  1. MIRALAX [Suspect]
     Active Substance: POLYETHYLENE GLYCOL 3350
     Indication: CONSTIPATION
     Dosage: 1 DOSE, QD
     Route: 048
     Dates: start: 201502, end: 20150415
  2. LIVALO [Concomitant]
     Active Substance: PITAVASTATIN CALCIUM
  3. BAYER ASPIRIN REGIMEN [Concomitant]
     Dosage: UNK

REACTIONS (2)
  - Off label use [None]
  - Alopecia [Not Recovered/Not Resolved]

NARRATIVE: CASE EVENT DATE: 201503
